FAERS Safety Report 13115084 (Version 1)
Quarter: 2017Q1

REPORT INFORMATION
  Report Type: Spontaneous
  Country: US (occurrence: US)
  Receive Date: 20170113
  Receipt Date: 20170113
  Transmission Date: 20170428
  Serious: No
  Sender: FDA-Public Use
  Company Number: US-AMNEAL PHARMACEUTICALS-2016AMN00648

PATIENT
  Age: 70 Year
  Sex: Female
  Weight: 48.98 kg

DRUGS (2)
  1. ^HIGH BLOOD PRESSURE MEDICINE^ [Concomitant]
     Indication: HYPERTENSION
     Dosage: UNK
  2. DICLOFENAC SODIUM. [Suspect]
     Active Substance: DICLOFENAC SODIUM
     Indication: ANALGESIC THERAPY
     Dosage: 2 G, 4X/DAY
     Route: 061
     Dates: start: 20160915, end: 20160930

REACTIONS (2)
  - Pruritus [Recovering/Resolving]
  - Rash erythematous [Recovering/Resolving]

NARRATIVE: CASE EVENT DATE: 20160916
